FAERS Safety Report 8970997 (Version 1)
Quarter: 2012Q4

REPORT INFORMATION
  Report Type: 
  Country: US (occurrence: US)
  Receive Date: 20121217
  Receipt Date: 20121217
  Transmission Date: 20130627
  Serious: Yes (Other)
  Sender: FDA-Public Use
  Company Number: US-BAYER-2012-130210

PATIENT
  Age: 7 Year
  Sex: Female
  Weight: 29.48 kg

DRUGS (1)
  1. RID 1-2-3 SYSTEM [Suspect]
     Indication: HEAD LICE
     Dosage: 1 DF, ONCE
     Route: 061
     Dates: start: 20121205, end: 20121205

REACTIONS (5)
  - Scarlet fever [Not Recovered/Not Resolved]
  - Pyrexia [Not Recovered/Not Resolved]
  - Vomiting [Not Recovered/Not Resolved]
  - Chapped lips [Not Recovered/Not Resolved]
  - Rash erythematous [Not Recovered/Not Resolved]
